FAERS Safety Report 10713425 (Version 1)
Quarter: 2015Q1

REPORT INFORMATION
  Report Type: Spontaneous
  Country: US (occurrence: None)
  Receive Date: 20150114
  Receipt Date: 20150114
  Transmission Date: 20150721
  Serious: Yes (Hospitalization)
  Sender: FDA-Public Use
  Company Number: None

PATIENT
  Age: 95 Year
  Sex: Male
  Weight: 65.1 kg

DRUGS (2)
  1. OXYBUTYNIN [Suspect]
     Active Substance: OXYBUTYNIN
     Indication: HYPERTONIC BLADDER
     Route: 048
     Dates: start: 20070720, end: 20141223
  2. SCOPOLAMINE [Suspect]
     Active Substance: SCOPOLAMINE
     Indication: DIZZINESS
     Dosage: OTHER
     Route: 061
     Dates: start: 20100331, end: 20121209

REACTIONS (9)
  - Nystagmus [None]
  - Hallucination [None]
  - Dizziness [None]
  - Fall [None]
  - Vertigo [None]
  - Head injury [None]
  - Vestibular neuronitis [None]
  - Hallucination, visual [None]
  - Upper respiratory tract infection [None]

NARRATIVE: CASE EVENT DATE: 20141221
